FAERS Safety Report 23715521 (Version 1)
Quarter: 2024Q2

REPORT INFORMATION
  Report Type: Spontaneous
  Country: US (occurrence: US)
  Receive Date: 20240407
  Receipt Date: 20240407
  Transmission Date: 20240716
  Serious: Yes (Other)
  Sender: FDA-Public Use
  Company Number: US-STERISCIENCE B.V.-2024-ST-000246

PATIENT
  Age: 51 Year
  Sex: Male

DRUGS (2)
  1. MYCOPHENOLATE MOFETIL [Suspect]
     Active Substance: MYCOPHENOLATE MOFETIL
     Indication: Diffuse panbronchiolitis
     Dosage: UNK
     Route: 065
  2. AZATHIOPRINE [Suspect]
     Active Substance: AZATHIOPRINE
     Indication: Diffuse panbronchiolitis
     Dosage: UNK
     Route: 065

REACTIONS (2)
  - Treatment failure [Unknown]
  - Off label use [Unknown]
